FAERS Safety Report 8250386-5 (Version None)
Quarter: 2012Q1

REPORT INFORMATION
  Report Type: 
  Country: None (occurrence: None)
  Receive Date: 20120328
  Receipt Date: 20120316
  Transmission Date: 20120608
  Serious: Yes (Other)
  Sender: FDA-Public Use
  Company Number: CERZ-1000473

PATIENT
  Age: 72 Year
  Sex: Female
  Weight: 61.5 kg

DRUGS (3)
  1. CEREZYME [Suspect]
     Indication: GAUCHER'S DISEASE
     Dosage: SEE IMAGE
     Route: 042
     Dates: start: 20000823
  2. CEREZYME [Suspect]
     Indication: GAUCHER'S DISEASE
     Dosage: SEE IMAGE
     Route: 042
     Dates: start: 19980916
  3. CEREZYME [Suspect]
     Indication: GAUCHER'S DISEASE
     Dosage: SEE IMAGE
     Route: 042
     Dates: start: 19970514

REACTIONS (13)
  - WEIGHT INCREASED [None]
  - DISCOMFORT [None]
  - CARPAL TUNNEL SYNDROME [None]
  - DEVICE FAILURE [None]
  - ABDOMINAL DISTENSION [None]
  - TRIGGER FINGER [None]
  - CEREBROVASCULAR ACCIDENT [None]
  - TRANSIENT GLOBAL AMNESIA [None]
  - EPILEPSY [None]
  - DECREASED APPETITE [None]
  - HYPERTENSION [None]
  - DEPRESSION [None]
  - CONSTIPATION [None]
